FAERS Safety Report 4640305-2 (Version None)
Quarter: 2005Q2

REPORT INFORMATION
  Report Type: 
  Country: None (occurrence: None)
  Receive Date: 20050420
  Receipt Date: 20040614
  Transmission Date: 20051028
  Serious: No
  Sender: FDA-Public Use
  Company Number: US-GLAXOSMITHKLINE-A0514513A

PATIENT
  Sex: Female

DRUGS (2)
  1. ESKALITH [Suspect]
     Route: 048
  2. THYROID TAB [Concomitant]

REACTIONS (2)
  - DIARRHOEA [None]
  - TINNITUS [None]
